FAERS Safety Report 7648213-X (Version None)
Quarter: 2011Q3

REPORT INFORMATION
  Report Type: 
  Country: None (occurrence: None)
  Receive Date: 20110801
  Receipt Date: 20110727
  Transmission Date: 20111222
  Serious: No
  Sender: FDA-Public Use
  Company Number: US-PFIZER INC-2011171053

PATIENT
  Sex: Male

DRUGS (4)
  1. SYNTHROID [Concomitant]
     Dosage: 100 UG, UNK
  2. BENICAR [Concomitant]
     Dosage: 40 MG, UNK
  3. SUTENT [Suspect]
     Dosage: 50 MG, 1X/DAY, FOR 28 DAYS EVERY 6 WEEKS
     Route: 048
  4. VITAMIN D [Concomitant]
     Dosage: 1000 UNITS

REACTIONS (2)
  - HYPERTENSION [None]
  - FATIGUE [None]
